FAERS Safety Report 25365875 (Version 1)
Quarter: 2025Q2

REPORT INFORMATION
  Report Type: Spontaneous
  Country: NL (occurrence: NL)
  Receive Date: 20250528
  Receipt Date: 20250528
  Transmission Date: 20250717
  Serious: Yes (Hospitalization, Other)
  Sender: UNICHEM
  Company Number: NL-UNICHEM LABORATORIES LIMITED-UNI-2025-NL-002329

PATIENT

DRUGS (1)
  1. AMITRIPTYLINE [Suspect]
     Active Substance: AMITRIPTYLINE
     Indication: Antidepressant therapy
     Route: 065

REACTIONS (2)
  - Toxicity to various agents [Unknown]
  - Electrocardiogram QT prolonged [Unknown]
